FAERS Safety Report 8032152-9 (Version None)
Quarter: 2012Q1

REPORT INFORMATION
  Report Type: 
  Country: None (occurrence: None)
  Receive Date: 20120109
  Receipt Date: 20120104
  Transmission Date: 20120608
  Serious: Yes (Hospitalization)
  Sender: FDA-Public Use
  Company Number: DE-ELI_LILLY_AND_COMPANY-DE201109006472

PATIENT
  Sex: Female
  Weight: 109.1 kg

DRUGS (11)
  1. MOXONIDIN [Concomitant]
     Indication: HYPERTENSION
     Dosage: 0.4 MG, QD
  2. MOXONIDIN [Concomitant]
     Dosage: 0.2 MG, UNK
  3. PROVAS                             /00641902/ [Concomitant]
     Indication: HYPERTENSION
     Dosage: 320 MG, QD
  4. AMLODIPINE BESYLATE [Concomitant]
  5. SIMVASTATIN [Concomitant]
     Indication: HYPERCHOLESTEROLAEMIA
     Dosage: UNK, QD
  6. METFORMIN HCL [Concomitant]
     Dosage: 1000 MG, BID
  7. DIURETICS [Concomitant]
  8. BYETTA [Suspect]
     Dosage: 10 UG, BID
     Route: 058
     Dates: start: 20090113, end: 20100920
  9. REPAGLINIDE [Concomitant]
     Indication: DIABETES PROPHYLAXIS
     Dosage: 0.5 MG, PRN
  10. NSAID'S [Concomitant]
  11. BYETTA [Suspect]
     Indication: TYPE 2 DIABETES MELLITUS
     Dosage: 5 UG, BID
     Dates: start: 20081212, end: 20090113

REACTIONS (4)
  - WEIGHT DECREASED [None]
  - GALLBLADDER DISORDER [None]
  - CHOLELITHIASIS [None]
  - PANCREATITIS ACUTE [None]
